FAERS Safety Report 6029782-2 (Version None)
Quarter: 2009Q1

REPORT INFORMATION
  Report Type: 
  Country: None (occurrence: None)
  Receive Date: 20090106
  Receipt Date: 20090106
  Transmission Date: 20090719
  Serious: Yes (Death, Life-Threatening, Disabling)
  Sender: FDA-Public Use
  Company Number: None

PATIENT
  Age: 46 Year
  Sex: Female
  Weight: 54.4316 kg

DRUGS (4)
  1. LEXAPRO [Suspect]
     Indication: ANXIETY
     Dates: start: 20080701
  2. CYMBALTA [Suspect]
     Dates: start: 20080401
  3. CYMBALTA [Suspect]
     Dates: start: 20080501
  4. EFFEXOR XR [Suspect]
     Dosage: 75MG. INTERNAL

REACTIONS (1)
  - NO ADVERSE EVENT [None]
